FAERS Safety Report 9105298 (Version 2)
Quarter: 2013Q1

REPORT INFORMATION
  Report Type: Spontaneous
  Country: CZ (occurrence: CZ)
  Receive Date: 20130220
  Receipt Date: 20130312
  Transmission Date: 20140127
  Serious: Yes (Other)
  Sender: FDA-Public Use
  Company Number: CZ-ELI_LILLY_AND_COMPANY-CZ201302002218

PATIENT
  Age: 6 Year
  Sex: Male
  Weight: 25 kg

DRUGS (3)
  1. STRATTERA [Suspect]
     Indication: ATTENTION DEFICIT/HYPERACTIVITY DISORDER
     Dosage: 25 MG, QD
     Route: 048
     Dates: start: 20121105, end: 20130114
  2. XYZAL [Concomitant]
     Dosage: 1 DF, QD
     Route: 048
  3. SERETIDE [Concomitant]

REACTIONS (2)
  - Alopecia areata [Not Recovered/Not Resolved]
  - Respiratory tract infection [Recovered/Resolved]
